FAERS Safety Report 10557813 (Version 2)
Quarter: 2014Q4

REPORT INFORMATION
  Report Type: Spontaneous
  Country: ES (occurrence: None)
  Receive Date: 20141029
  Receipt Date: 20141113
  Transmission Date: 20150529
  Serious: Yes (Other)
  Sender: FDA-Public Use
  Company Number: E2B_7328867

PATIENT

DRUGS (1)
  1. EUTIROX [Suspect]
     Active Substance: LEVOTHYROXINE SODIUM
     Indication: PRODUCT USED FOR UNKNOWN INDICATION
     Dates: start: 20140625, end: 20140625

REACTIONS (4)
  - Incorrect dosage administered [None]
  - Condition aggravated [None]
  - Extra dose administered [None]
  - Atrial fibrillation [None]

NARRATIVE: CASE EVENT DATE: 20140625
